FAERS Safety Report 12624339 (Version 1)
Quarter: 2016Q3

REPORT INFORMATION
  Report Type: Other
  Country: TR (occurrence: TR)
  Receive Date: 20160805
  Receipt Date: 20160805
  Transmission Date: 20161109
  Serious: Yes (Other)
  Sender: FDA-Public Use
  Company Number: TR-ORCHID HEALTHCARE-1055898

PATIENT
  Age: 72 Year
  Sex: Female

DRUGS (5)
  1. CLOPIDOGREL [Concomitant]
     Active Substance: CLOPIDOGREL BISULFATE
     Route: 048
  2. ACETYLSALICYLIC ACID [Concomitant]
     Active Substance: ASPIRIN
     Route: 048
  3. ATORVASTATIN [Concomitant]
     Active Substance: ATORVASTATIN
     Route: 048
  4. PANTOPRAZOLE SODIUM. [Suspect]
     Active Substance: PANTOPRAZOLE SODIUM
     Route: 042
  5. ENOXAPARIN [Concomitant]
     Active Substance: ENOXAPARIN
     Route: 058

REACTIONS (3)
  - Blood creatinine increased [Unknown]
  - Anaemia [Recovered/Resolved]
  - Blood urea increased [Unknown]
